FAERS Safety Report 5492328-1 (Version None)
Quarter: 2007Q4

REPORT INFORMATION
  Report Type: 
  Country: None (occurrence: None)
  Receive Date: 20071022
  Receipt Date: 20070829
  Transmission Date: 20080405
  Serious: Yes (Hospitalization, Other)
  Sender: FDA-Public Use
  Company Number: US-AVENTIS-200711017US

PATIENT
  Sex: Female
  Weight: 45.9 kg

DRUGS (6)
  1. ARAVA [Suspect]
     Dates: start: 20061201
  2. ARAVA [Suspect]
     Dates: start: 20070101
  3. NEXIUM [Concomitant]
     Route: 048
  4. ACCOLATE [Concomitant]
     Route: 048
  5. YASMIN [Concomitant]
     Dosage: DOSE QUANTITY: 1
     Route: 048
  6. SYNTHROID [Concomitant]
     Route: 048

REACTIONS (3)
  - ASTHENIA [None]
  - DIZZINESS [None]
  - HYPOTENSION [None]
